FAERS Safety Report 23799311 (Version 1)
Quarter: 2024Q2

REPORT INFORMATION
  Report Type: Spontaneous
  Country: US (occurrence: None)
  Receive Date: 20240428
  Receipt Date: 20240428
  Transmission Date: 20240716
  Serious: No
  Sender: FDA-Public Use
  Company Number: None

PATIENT
  Age: 66 Year
  Sex: Male
  Weight: 66 kg

DRUGS (1)
  1. FUROSEMIDE [Suspect]
     Active Substance: FUROSEMIDE
     Indication: Oedema
     Dosage: 40 MG EVERY DAY PO
     Route: 048
     Dates: start: 20210707

REACTIONS (3)
  - Acute kidney injury [None]
  - Diarrhoea [None]
  - Oedema peripheral [None]

NARRATIVE: CASE EVENT DATE: 20230330
